FAERS Safety Report 7235987-5 (Version None)
Quarter: 2011Q1

REPORT INFORMATION
  Report Type: 
  Country: None (occurrence: None)
  Receive Date: 20110120
  Receipt Date: 20110113
  Transmission Date: 20110831
  Serious: Yes (Hospitalization)
  Sender: FDA-Public Use
  Company Number: B0694244A

PATIENT
  Age: 88 Year
  Sex: Female
  Weight: 61 kg

DRUGS (11)
  1. TOLVON [Suspect]
     Dosage: 30MG PER DAY
     Route: 048
     Dates: start: 20100601, end: 20101105
  2. TOREM [Concomitant]
     Dosage: 10MG PER DAY
     Dates: start: 20101021
  3. REMINYL [Concomitant]
     Dosage: 8MG PER DAY
     Dates: start: 20110107
  4. EUTHYROX [Concomitant]
     Dosage: 100UG PER DAY
     Route: 048
  5. DAFALGAN [Concomitant]
     Route: 048
  6. CLAMOXYL [Suspect]
     Dosage: 1G TWICE PER DAY
     Route: 048
     Dates: start: 20101030, end: 20101105
  7. NEXIUM [Concomitant]
     Dosage: 40MG PER DAY
     Route: 048
     Dates: start: 20101025
  8. PIROXICAM [Suspect]
     Dosage: 20MG PER DAY
     Route: 065
     Dates: start: 20100601
  9. ARICEPT [Suspect]
     Dosage: 10MG PER DAY
     Route: 048
     Dates: start: 20100601, end: 20101108
  10. DALMADORM [Concomitant]
     Dosage: 30MG PER DAY
     Route: 048
  11. KLACID [Suspect]
     Dosage: 500MG TWICE PER DAY
     Route: 048
     Dates: start: 20101030, end: 20101105

REACTIONS (4)
  - GASTRIC ULCER HELICOBACTER [None]
  - RASH MACULO-PAPULAR [None]
  - WEIGHT DECREASED [None]
  - DRUG LEVEL INCREASED [None]
